FAERS Safety Report 6527192-2 (Version None)
Quarter: 2010Q1

REPORT INFORMATION
  Report Type: 
  Country: None (occurrence: None)
  Receive Date: 20100105
  Receipt Date: 20091229
  Transmission Date: 20100710
  Serious: Yes (Other)
  Sender: FDA-Public Use
  Company Number: B0621824A

PATIENT
  Age: 38 Year
  Sex: Female
  Weight: 75 kg

DRUGS (27)
  1. ZANAMIVIR [Suspect]
     Indication: ILL-DEFINED DISORDER
     Route: 042
  2. RELENZA [Suspect]
     Route: 065
  3. TAMIFLU [Suspect]
     Route: 065
  4. METHADONE [Concomitant]
  5. VANCOMYCIN [Concomitant]
  6. OMEPRAZOLE [Concomitant]
  7. RANITIDINE [Concomitant]
  8. FLUOXETINE [Concomitant]
  9. DALTEPARIN [Concomitant]
  10. OSELTAMIVIR PHOSPHATE [Concomitant]
  11. CHLORHEXIDINE GLUCONATE [Concomitant]
  12. PARACETAMOL [Concomitant]
  13. ALBUTEROL [Concomitant]
  14. PABRINEX [Concomitant]
  15. NULYTELY [Concomitant]
  16. SENNA [Concomitant]
  17. TAZOCIN [Concomitant]
  18. CIPROFLOXACIN [Concomitant]
  19. AMOXICILLIN [Concomitant]
  20. CLINDAMYCIN [Concomitant]
  21. DIAZEPAM [Concomitant]
  22. PROPOFOL [Concomitant]
  23. ALFENTANIL [Concomitant]
  24. MIDAZOLAM HCL [Concomitant]
  25. FUROSEMIDE [Concomitant]
  26. CLONIDINE [Concomitant]
  27. ACTRAPID [Concomitant]

REACTIONS (1)
  - HEPATIC ENZYME ABNORMAL [None]
